FAERS Safety Report 8517701-6 (Version None)
Quarter: 2012Q3

REPORT INFORMATION
  Report Type: 
  Country: None (occurrence: None)
  Receive Date: 20120712
  Receipt Date: 20120712
  Transmission Date: 20120928
  Serious: Yes (Other)
  Sender: FDA-Public Use
  Company Number: None

PATIENT
  Age: 60 Year
  Sex: Female
  Weight: 64.8644 kg

DRUGS (1)
  1. DIVALPROEX SODIUM [Suspect]
     Indication: BIPOLAR DISORDER
     Dosage: 500 MG, 2QHS, ORAL
     Route: 048
     Dates: start: 20120620, end: 20120621

REACTIONS (2)
  - DYSPHAGIA [None]
  - PRODUCT SUBSTITUTION ISSUE [None]
